FAERS Safety Report 7654960-6 (Version None)
Quarter: 2011Q3

REPORT INFORMATION
  Report Type: 
  Country: None (occurrence: None)
  Receive Date: 20110804
  Receipt Date: 20110722
  Transmission Date: 20111222
  Serious: No
  Sender: FDA-Public Use
  Company Number: PHHY2011US67151

PATIENT
  Age: 56 Year
  Sex: Female
  Weight: 78.458 kg

DRUGS (8)
  1. FLUCONAZOLE [Concomitant]
  2. SYNTHROID [Concomitant]
  3. SUDAFED 12 HOUR [Concomitant]
  4. VAGIFEM [Concomitant]
  5. DIOVAN HCT [Concomitant]
  6. CENESTIN [Concomitant]
  7. TASIGNA [Suspect]
     Indication: CHRONIC MYELOID LEUKAEMIA
     Dosage: 400 MG, Q12H
     Route: 048
     Dates: start: 20100301
  8. NASONEX [Concomitant]

REACTIONS (2)
  - WHITE BLOOD CELL COUNT INCREASED [None]
  - PLATELET COUNT INCREASED [None]
